FAERS Safety Report 19155914 (Version 1)
Quarter: 2021Q2

REPORT INFORMATION
  Report Type: Spontaneous
  Country: IR (occurrence: IR)
  Receive Date: 20210420
  Receipt Date: 20210420
  Transmission Date: 20210717
  Serious: Yes (Other)
  Sender: FDA-Public Use
  Company Number: IR-ROCHE-2811710

PATIENT
  Sex: Female
  Weight: 50 kg

DRUGS (6)
  1. TYSABRI [Suspect]
     Active Substance: NATALIZUMAB
     Dosage: NUMBER OF INFUSIONS 5
     Route: 042
     Dates: start: 201911, end: 202006
  2. TYSABRI [Suspect]
     Active Substance: NATALIZUMAB
     Indication: MULTIPLE SCLEROSIS
     Route: 042
     Dates: start: 201810, end: 202012
  3. RITUXAN [Suspect]
     Active Substance: RITUXIMAB
     Indication: PRODUCT USED FOR UNKNOWN INDICATION
     Route: 065
     Dates: start: 202102
  4. TYSABRI [Suspect]
     Active Substance: NATALIZUMAB
     Dosage: NUMBER OF INFUSIONS 15
     Route: 042
     Dates: start: 201810, end: 201911
  5. TYSABRI [Suspect]
     Active Substance: NATALIZUMAB
     Dosage: NUMBER OF INFUSIONS 3
     Route: 042
     Dates: start: 202006, end: 202012
  6. METHYLPREDNISOLONE. [Concomitant]
     Active Substance: METHYLPREDNISOLONE
     Dates: start: 20210315

REACTIONS (1)
  - Progressive multifocal leukoencephalopathy [Unknown]
